FAERS Safety Report 20698125 (Version 1)
Quarter: 2022Q2

REPORT INFORMATION
  Report Type: Spontaneous
  Country: US (occurrence: US)
  Receive Date: 20220412
  Receipt Date: 20220412
  Transmission Date: 20220721
  Serious: No
  Sender: FDA-Public Use
  Company Number: US-SA-SAC20220408001582

PATIENT
  Sex: Female

DRUGS (12)
  1. DUPIXENT [Suspect]
     Active Substance: DUPILUMAB
     Indication: Bronchiectasis
     Dosage: 300 MG, QOW
     Route: 058
  2. AMLODIPINE BESYLATE [Concomitant]
     Active Substance: AMLODIPINE BESYLATE
  3. ALASTINE [AZELASTINE HYDROCHLORIDE] [Concomitant]
  4. BENZONATATE [Concomitant]
     Active Substance: BENZONATATE
  5. BREO ELLIPTA [Concomitant]
     Active Substance: FLUTICASONE FUROATE\VILANTEROL TRIFENATATE
  6. FLUTICASONE [Concomitant]
     Active Substance: FLUTICASONE
  7. GAMMAGARD [Concomitant]
     Active Substance: HUMAN IMMUNOGLOBULIN G
  8. HYDROXYZINE [Concomitant]
     Active Substance: HYDROXYZINE HYDROCHLORIDE
  9. IPRATROPIUM [Concomitant]
     Active Substance: IPRATROPIUM
  10. VITAMIN D NOS [Concomitant]
     Active Substance: VITAMIN D NOS
  11. FERROUS SULFATE [Concomitant]
     Active Substance: FERROUS SULFATE
  12. BECLOMETHASONE DIPROPIONATE [Concomitant]
     Active Substance: BECLOMETHASONE DIPROPIONATE

REACTIONS (3)
  - Cough [Unknown]
  - Wheezing [Unknown]
  - Product use in unapproved indication [Unknown]
